FAERS Safety Report 20152988 (Version 8)
Quarter: 2022Q1

REPORT INFORMATION
  Report Type: Report from Study
  Country: CN (occurrence: None)
  Receive Date: 20211206
  Receipt Date: 20220221
  Transmission Date: 20220423
  Serious: Yes (Life-Threatening, Hospitalization)
  Sender: FDA-Public Use
  Company Number: CN-ROCHE-2971628

PATIENT
  Age: 52 Year
  Sex: Male
  Weight: 70 kg

DRUGS (16)
  1. BEVACIZUMAB [Suspect]
     Active Substance: BEVACIZUMAB
     Indication: Hepatocellular carcinoma
     Dosage: DATE OF MOST RECENT DOSE OF STUDY DRUG PRIOR TO ADVERSE EVENT PRIOR TO AE AND SAE ON 15-OCT-2021 AND
     Route: 042
     Dates: start: 20210501
  2. ATEZOLIZUMAB [Suspect]
     Active Substance: ATEZOLIZUMAB
     Indication: Hepatocellular carcinoma
     Dosage: DATE OF MOST RECENT DOSE OF STUDY DRUG PRIOR TO ADVERSE EVENT  PRIOR TO AE AND SAE ON 15-OCT-2021 AN
     Route: 041
     Dates: start: 20210501
  3. GLIMEPIRIDE [Concomitant]
     Active Substance: GLIMEPIRIDE
     Indication: Type 2 diabetes mellitus
     Route: 048
     Dates: start: 2018
  4. METFORMIN HYDROCHLORIDE [Concomitant]
     Active Substance: METFORMIN HYDROCHLORIDE
     Indication: Type 2 diabetes mellitus
     Dates: start: 2018
  5. ENTECAVIR [Concomitant]
     Active Substance: ENTECAVIR
     Indication: Hepatitis B
     Dates: start: 20210328
  6. AMLODIPINE\VALSARTAN [Concomitant]
     Active Substance: AMLODIPINE\VALSARTAN
     Indication: Hypertension
     Dates: start: 20210611
  7. OCTREOTIDE [Concomitant]
     Active Substance: OCTREOTIDE
  8. OMEPRAZOLE [Concomitant]
     Active Substance: OMEPRAZOLE
  9. POTASSIUM CHLORIDE [Concomitant]
     Active Substance: POTASSIUM CHLORIDE
     Dates: start: 20211105, end: 20211105
  10. SODIUM CHLORIDE [Concomitant]
     Active Substance: SODIUM CHLORIDE
     Dates: start: 20211105, end: 20211105
  11. INSULIN NOS [Concomitant]
     Active Substance: INSULIN NOS
     Dates: start: 20211105, end: 20211105
  12. TRANSMETIL [ADEMETIONINE 1,4-BUTANEDISULFONATE] [Concomitant]
     Indication: Hepatic cirrhosis
     Dates: start: 20211124, end: 20211127
  13. GLUTATHIONE [Concomitant]
     Active Substance: GLUTATHIONE
     Indication: Hepatic cirrhosis
     Dates: start: 20211124, end: 20211127
  14. URSODIOL [Concomitant]
     Active Substance: URSODIOL
     Indication: Hepatic cirrhosis
     Dates: start: 20211015, end: 20211126
  15. THROMBOPOIETIN [Concomitant]
     Active Substance: THROMBOPOIETIN
     Indication: Platelet count decreased
     Dates: start: 20211124, end: 20211127
  16. SUCRALFATE [Concomitant]
     Active Substance: SUCRALFATE
     Dates: start: 20211216, end: 20211226

REACTIONS (1)
  - Oesophageal varices haemorrhage [Recovered/Resolved]

NARRATIVE: CASE EVENT DATE: 20211129
